FAERS Safety Report 10611199 (Version 1)
Quarter: 2014Q4

REPORT INFORMATION
  Report Type: Spontaneous
  Country: IT (occurrence: IT)
  Receive Date: 20141126
  Receipt Date: 20141126
  Transmission Date: 20150529
  Serious: Yes (Other)
  Sender: FDA-Public Use
  Company Number: IT-TEVA-524663ISR

PATIENT
  Age: 53 Year
  Sex: Female

DRUGS (3)
  1. CETIRIZINE [Suspect]
     Active Substance: CETIRIZINE HYDROCHLORIDE
     Indication: PRURITUS
     Dosage: 10 MILLIGRAM DAILY;
     Route: 065
  2. CETIRIZINE [Suspect]
     Active Substance: CETIRIZINE HYDROCHLORIDE
     Indication: URTICARIA
  3. TETRABENAZINE [Suspect]
     Active Substance: TETRABENAZINE
     Indication: OROMANDIBULAR DYSTONIA
     Dosage: 25 MILLIGRAM DAILY;
     Route: 065

REACTIONS (3)
  - Parkinsonism [Recovering/Resolving]
  - Feeding disorder [Recovering/Resolving]
  - Oromandibular dystonia [Recovering/Resolving]
